FAERS Safety Report 7927084 (Version 4)
Quarter: 2014Q2

REPORT INFORMATION
  Report Type: Spontaneous
  Country: US (occurrence: US)
  Receive Date: 20110502
  Receipt Date: 20140617
  Transmission Date: 20141212
  Serious: No
  Sender: FDA-Public Use
  Company Number: US-ASTRAZENECA-2011SE07218

PATIENT
  Age: 54 Year
  Sex: Female
  Weight: 118.4 kg

DRUGS (7)
  1. NEXIUM [Suspect]
     Indication: GASTROOESOPHAGEAL REFLUX DISEASE
     Route: 048
     Dates: start: 2010, end: 201404
  2. LYRICA [Concomitant]
     Indication: MUSCULOSKELETAL PAIN
  3. LITHIUM [Concomitant]
     Indication: BIPOLAR DISORDER
  4. RISPERIDONE [Concomitant]
     Indication: BIPOLAR DISORDER
  5. GENERIC FOR LIPITOR [Concomitant]
     Indication: BLOOD CHOLESTEROL INCREASED
  6. UNKNOWN [Concomitant]
     Indication: THYROID DISORDER
  7. TIMOLOL [Concomitant]
     Indication: GLAUCOMA

REACTIONS (6)
  - Gastrooesophageal reflux disease [Unknown]
  - Pain [Unknown]
  - Dyspepsia [Not Recovered/Not Resolved]
  - Vomiting [Unknown]
  - Drug dose omission [Not Recovered/Not Resolved]
  - Intentional product misuse [Recovered/Resolved]
